FAERS Safety Report 4288643-X (Version None)
Quarter: 2004Q1

REPORT INFORMATION
  Report Type: 
  Country: None (occurrence: None)
  Receive Date: 20040209
  Receipt Date: 20040130
  Transmission Date: 20041129
  Serious: Yes (Other)
  Sender: FDA-Public Use
  Company Number: US-BRISTOL-MYERS SQUIBB COMPANY-12495594

PATIENT
  Sex: Female

DRUGS (3)
  1. AVAPRO [Suspect]
     Indication: HYPERTENSION
     Route: 048
  2. TRIAMTERENE AND HYDROCHLOROTHIAZIDE [Concomitant]
     Indication: HYPERTENSION
     Route: 048
  3. VERAPAMIL [Concomitant]
     Indication: HYPERTENSION
     Route: 048

REACTIONS (4)
  - HYPOTENSION [None]
  - PALPITATIONS [None]
  - VENTRICULAR EXTRASYSTOLES [None]
  - WEIGHT DECREASED [None]
